FAERS Safety Report 14790511 (Version 1)
Quarter: 2018Q2

REPORT INFORMATION
  Report Type: Spontaneous
  Country: FR (occurrence: FR)
  Receive Date: 20180423
  Receipt Date: 20180423
  Transmission Date: 20180711
  Serious: Yes (Hospitalization, Other)
  Sender: FDA-Public Use
  Company Number: FR-MYLANLABS-2018M1024750

PATIENT
  Age: 75 Year
  Sex: Male

DRUGS (2)
  1. CEFAZOLIN [Suspect]
     Active Substance: CEFAZOLIN
     Indication: ENDOCARDITIS STAPHYLOCOCCAL
     Route: 042
  2. RIFAMPICIN [Suspect]
     Active Substance: RIFAMPIN
     Indication: ENDOCARDITIS STAPHYLOCOCCAL
     Route: 065

REACTIONS (6)
  - Confusional state [Recovered/Resolved]
  - Hypotension [Recovered/Resolved]
  - Vitamin K deficiency [Recovered/Resolved]
  - Hypoprothrombinaemia [Recovered/Resolved]
  - Hypovitaminosis [Recovered/Resolved]
  - Melaena [Recovered/Resolved]
